FAERS Safety Report 9530181 (Version 3)
Quarter: 2013Q4

REPORT INFORMATION
  Report Type: Spontaneous
  Country: US (occurrence: US)
  Receive Date: 20130917
  Receipt Date: 20131212
  Transmission Date: 20140711
  Serious: Yes (Death, Other)
  Sender: FDA-Public Use
  Company Number: US-PFIZER INC-2013263832

PATIENT
  Age: 52 Year
  Sex: Female

DRUGS (13)
  1. GLUCOTROL [Suspect]
     Indication: DIABETES MELLITUS
     Dosage: 10 MG, 2X/DAY
     Route: 048
  2. GLUCOTROL XL [Suspect]
     Dosage: UNK
  3. ADVAIR DISKUS [Concomitant]
     Dosage: FLUTICASONE PROPIONATE 500/ SALMETEROL XINAFOATE 50, 1 PUFF  BID
     Route: 055
  4. DUONEB [Concomitant]
     Dosage: 1 DF, 4X/DAY
  5. SPIRONOLACTONE [Concomitant]
     Dosage: 25 MG, 2X/DAY
     Route: 048
  6. HUMULIN N [Concomitant]
     Dosage: 55 UNITS, 2X/DAY
  7. LASIX [Concomitant]
     Dosage: 20MG 1 1/2 TABS, DAILY
  8. LISINOPRIL [Concomitant]
     Dosage: 10 MG 1/2 TAB, DAILY
  9. NADOLOL [Concomitant]
     Dosage: 50MG 1/2 TAB, DAILY
  10. FAMOTIDINE [Concomitant]
     Dosage: 20 MG, 2X/DAY
     Route: 048
  11. CYCLOBENZAPRINE [Concomitant]
     Dosage: 10 MG, 1 TID PRN
  12. HUMALOG [Concomitant]
     Dosage: SLIDING SCALE
  13. HYDROCODONE W/ACETAMINOPHEN [Concomitant]
     Dosage: HYDROCODONE BITARTRATE 10MG/ PARACETAMOL 325MG, 1 TID PRN

REACTIONS (2)
  - Hepatic cirrhosis [Fatal]
  - Myocardial infarction [Recovered/Resolved with Sequelae]
